FAERS Safety Report 9825695 (Version 1)
Quarter: 2013Q4

REPORT INFORMATION
  Report Type: Spontaneous
  Country: US (occurrence: None)
  Receive Date: 20131028
  Receipt Date: 20131028
  Transmission Date: 20140711
  Serious: Yes (Other)
  Sender: FDA-Public Use
  Company Number: 2013US002330

PATIENT
  Age: 62 Year
  Sex: Female
  Weight: 77 kg

DRUGS (4)
  1. ICLUSIG [Suspect]
     Indication: CHRONIC MYELOID LEUKAEMIA
     Route: 048
     Dates: start: 20130703
  2. ASA (ASA) [Concomitant]
  3. METOPROLOL (METROPROLOL) [Concomitant]
  4. MULTIVITAMIN (VITAMINS NOS) [Concomitant]

REACTIONS (3)
  - Weight increased [None]
  - Oedema peripheral [None]
  - Constipation [None]
